FAERS Safety Report 11441621 (Version 2)
Quarter: 2015Q3

REPORT INFORMATION
  Report Type: Spontaneous
  Country: IT (occurrence: IT)
  Receive Date: 20150901
  Receipt Date: 20150918
  Transmission Date: 20151125
  Serious: Yes (Hospitalization, Other)
  Sender: FDA-Public Use
  Company Number: IT-BIOGENIDEC-2015BI073040

PATIENT
  Age: 50 Year
  Sex: Female

DRUGS (1)
  1. TYSABRI [Suspect]
     Active Substance: NATALIZUMAB
     Indication: RELAPSING-REMITTING MULTIPLE SCLEROSIS
     Route: 042
     Dates: start: 20141201, end: 201506

REACTIONS (15)
  - Abdominal pain [Recovered/Resolved]
  - Ventricular hypokinesia [Unknown]
  - Pruritus [Recovered/Resolved]
  - Paraesthesia oral [Unknown]
  - Chest pain [Recovered/Resolved]
  - Dysarthria [Unknown]
  - Urticaria [Recovered/Resolved]
  - Hypersensitivity [Unknown]
  - Gait disturbance [Unknown]
  - Troponin increased [Unknown]
  - Hypoaesthesia oral [Unknown]
  - Cardiac disorder [Unknown]
  - Electrocardiogram T wave inversion [Unknown]
  - Nausea [Recovered/Resolved]
  - Headache [Recovered/Resolved]

NARRATIVE: CASE EVENT DATE: 2015
